FAERS Safety Report 10953357 (Version 2)
Quarter: 2015Q2

REPORT INFORMATION
  Report Type: Spontaneous
  Country: JP (occurrence: None)
  Receive Date: 20150323
  Receipt Date: 20150415
  Transmission Date: 20150821
  Serious: No
  Sender: FDA-Public Use
  Company Number: 2015PL000031

PATIENT
  Age: 79 Year
  Sex: Male

DRUGS (39)
  1. ACICLOVIR [Concomitant]
     Active Substance: ACYCLOVIR
  2. ADRIACIN (DOXURUBICIN HYDROCHLORIDE) [Concomitant]
  3. URSO /00465701/(URSODEOXYCHOLIC ACID) [Concomitant]
  4. ENDOXAN /00021101/(CYCLOPHOSPHAMIDE) [Concomitant]
  5. GRANISETRON [Concomitant]
     Active Substance: GRANISETRON
  6. GOREISAN /08015901/ (ALISMA PLANTAGO-AQUATICA VAR. ORIENTALE TUBER, ATRACTYLODES SPP. RHIZOME, CINNAMOMIUM CASSIA BARK, POLYPORUS UMBELLATUS SCLEROTIUM, PORIA COCOS SCLEROTIUM) [Concomitant]
  7. TRANSAMIN (TRANEXAMIC ACID) [Concomitant]
  8. NEOMALLERMIN (DEXCHLORPHENIRAMINE MALEATE) [Concomitant]
  9. FLUCONAZOLE B BRAUN (FLUCONAZOLE) [Concomitant]
  10. MIYA BM (CLOSTRIDIUM BUTYRICUM) [Concomitant]
  11. LENADEX (DEXAMETHASONE) [Concomitant]
  12. CARBAZOCHROME SODIUM SULFONATE [Concomitant]
     Active Substance: CARBAZOCHROME SODIUM SULFONATE
  13. BAKTAR (SULFAMETHOXAZOLE, TRIMETHOPRIM) [Concomitant]
  14. ALLOPURINOL (ALLOPURINOL) TABLET [Suspect]
     Active Substance: ALLOPURINOL
     Indication: PRODUCT USED FOR UNKNOWN INDICATION
     Route: 048
     Dates: start: 20121030, end: 20130204
  15. BRUFEN /00109201/(IBUPROFEN) [Concomitant]
  16. BENAMBAX (PENTAMIDINE ISETHIONATE) [Concomitant]
  17. POTELIGEO [Suspect]
     Active Substance: MOGAMULIZUMAB
     Indication: PRODUCT USED FOR UNKNOWN INDICATION
     Route: 042
     Dates: start: 20121217, end: 20130204
  18. CARBOPLATIN. [Concomitant]
     Active Substance: CARBOPLATIN
  19. SOLU-CORTEF (HYDROCORTISONE SODIUM SUCCINATE) [Concomitant]
  20. FILGRASTIM [Concomitant]
     Active Substance: FILGRASTIM
  21. AMOLIN /00249602/(AMOXICILLIN TRIHYDRATE) [Concomitant]
  22. CYMERIN (RANIMUSTINE) [Concomitant]
  23. TRAJENTA (LINAGLIPTIN) [Concomitant]
     Active Substance: LINAGLIPTIN
  24. AVOLVE (DUTASTERIDE) [Concomitant]
     Active Substance: DUTASTERIDE
  25. ONCOVIN (VINCRISTINE SULFATE) [Concomitant]
  26. DIOVAN [Concomitant]
     Active Substance: VALSARTAN
  27. MEYLON (SODIUM BICARBONATE) [Concomitant]
  28. YOKUKANSAN (ANGELICA ACUTILOBA ROOT, ATRACTYLODES LANCEA RHIZOME, BUPLEURUM FALCATUM ROOT, CNIDIUM OFFICINALE RHIZOME, GLYCYRRHIZA SPP. ROOT, PORIA COCOS SCLEROTIUM, UNCARIA SPP. HOOK) [Concomitant]
  29. SODIUM RABEPRAZOLE [Concomitant]
     Active Substance: RABEPRAZOLE SODIUM
  30. FLUCONAZOLE. [Concomitant]
     Active Substance: FLUCONAZOLE
  31. ACINON /00867001/ (NIZATIDINE) [Concomitant]
  32. FLIVAS (NAFTOPIDIL) [Concomitant]
  33. VESICARE [Concomitant]
     Active Substance: SOLIFENACIN SUCCINATE
  34. MAGMITT (MAGNESIUM OXIDE) [Concomitant]
     Active Substance: MAGNESIUM OXIDE
  35. ALLELOCK (OLOPATADINE HYDROCHLORIDE) [Concomitant]
  36. CILNIDIPINE [Concomitant]
     Active Substance: CILNIDIPINE
  37. FILDESIN (VINDESINE SULFATE) [Concomitant]
  38. PREDONINE /00016201/(PREDNISOLONE) [Concomitant]
  39. LASTET (ETOPOSIDE) [Concomitant]

REACTIONS (2)
  - Skin disorder [None]
  - Rash [None]
